FAERS Safety Report 8376209-1 (Version None)
Quarter: 2012Q2

REPORT INFORMATION
  Report Type: 
  Country: None (occurrence: None)
  Receive Date: 20120522
  Receipt Date: 20120516
  Transmission Date: 20120825
  Serious: Yes (Hospitalization)
  Sender: FDA-Public Use
  Company Number: NL-GENZYME-CLOF-1002115

PATIENT
  Sex: Female
  Weight: 74 kg

DRUGS (4)
  1. VFEND [Concomitant]
     Indication: ASPERGILLOSIS
     Dosage: 320 MG, UNK
     Route: 048
     Dates: start: 20120323, end: 20120411
  2. IDARUBICIN HCL [Suspect]
     Indication: HAEMATOLOGICAL MALIGNANCY
     Dosage: 24 MG, UNK
     Route: 042
     Dates: start: 20120228, end: 20120301
  3. CYTARABINE [Suspect]
     Indication: HAEMATOLOGICAL MALIGNANCY
     Dosage: 400 MG, UNK
     Route: 042
     Dates: start: 20120228, end: 20120305
  4. CLOFARABINE [Suspect]
     Indication: HAEMATOLOGICAL MALIGNANCY
     Dosage: 20 MG, UNK
     Route: 042
     Dates: start: 20120228, end: 20120303

REACTIONS (1)
  - CONSTIPATION [None]
